FAERS Safety Report 8889964 (Version 1)
Quarter: 2012Q4

REPORT INFORMATION
  Report Type: 
  Country: US (occurrence: US)
  Receive Date: 20121107
  Receipt Date: 20121107
  Transmission Date: 20130627
  Serious: Yes (Hospitalization)
  Sender: FDA-Public Use
  Company Number: US-JNJFOC-20120810705

PATIENT
  Sex: Female
  Weight: 108.86 kg

DRUGS (16)
  1. XARELTO [Suspect]
     Indication: THROMBOSIS PROPHYLAXIS
     Route: 048
     Dates: start: 20120710
  2. XARELTO [Suspect]
     Indication: KNEE ARTHROPLASTY
     Route: 048
     Dates: start: 20120710
  3. ALPRAZOLAM [Concomitant]
  4. LOMOTIL [Concomitant]
  5. ASPIRIN [Concomitant]
     Dates: end: 20120623
  6. CITALOPRAM [Concomitant]
  7. COZAAR [Concomitant]
  8. ADALAT [Concomitant]
  9. HUMULIN INSULIN 70/30 [Concomitant]
     Dosage: dosage at supper
     Route: 058
  10. HUMULIN INSULIN 70/30 [Concomitant]
     Dosage: AM dosage
     Route: 058
  11. HYDROCODONE/ACETAMINOPHEN [Concomitant]
  12. LASIX [Concomitant]
  13. LATANOPROST [Concomitant]
     Dosage: on drop both eyes at bedtime
     Route: 047
  14. METFORMIN [Concomitant]
  15. MULTIVITAMIN TABLET [Concomitant]
  16. PHILLIPS COLON HEALTH [Concomitant]

REACTIONS (1)
  - Deep vein thrombosis [Recovering/Resolving]
